FAERS Safety Report 16964028 (Version 1)
Quarter: 2019Q4

REPORT INFORMATION
  Report Type: Spontaneous
  Country: US (occurrence: US)
  Receive Date: 20190909
  Receipt Date: 20190909
  Transmission Date: 20200122
  Serious: No
  Sender: FDA-Public Use
  Company Number: None

PATIENT
  Age: 61 Year
  Sex: Female

DRUGS (8)
  1. INSULIN HUMAN [Concomitant]
     Active Substance: INSULIN HUMAN
  2. HUMIRA [Suspect]
     Active Substance: ADALIMUMAB
     Indication: LIP NEOPLASM MALIGNANT STAGE UNSPECIFIED
     Route: 058
     Dates: start: 20190309
  3. LOSARTAN. [Concomitant]
     Active Substance: LOSARTAN
  4. METFORMIN [Concomitant]
     Active Substance: METFORMIN HYDROCHLORIDE
  5. ACARBOSE. [Concomitant]
     Active Substance: ACARBOSE
  6. RIVASTIGMINE. [Concomitant]
     Active Substance: RIVASTIGMINE
  7. ATORVASTATIN [Concomitant]
     Active Substance: ATORVASTATIN
  8. TRULICITY [Concomitant]
     Active Substance: DULAGLUTIDE

REACTIONS (1)
  - Breast cancer [None]

NARRATIVE: CASE EVENT DATE: 20190907
